FAERS Safety Report 7210906-6 (Version None)
Quarter: 2011Q1

REPORT INFORMATION
  Report Type: 
  Country: None (occurrence: None)
  Receive Date: 20110105
  Receipt Date: 20101228
  Transmission Date: 20110831
  Serious: Yes (Other)
  Sender: FDA-Public Use
  Company Number: US-AMGEN-USASP2010009721

PATIENT

DRUGS (21)
  1. ATENOLOL [Concomitant]
     Dosage: 25 MG, UNK
  2. TEMAZEPAM [Concomitant]
     Dosage: 15 MG, UNK
  3. ENBREL [Suspect]
     Indication: RHEUMATOID ARTHRITIS
     Dosage: UNK UNK, QWK
  4. TRAMADOL HCL [Concomitant]
     Dosage: 50 MG, UNK
  5. GABAPENTIN [Concomitant]
     Dosage: 600 MG, TID
  6. LEVOXYL [Concomitant]
     Dosage: 125 A?G, UNK
  7. CALCITRIOL [Concomitant]
     Dosage: 0.5 A?G, UNK
     Route: 048
  8. LAMISIL                            /00992602/ [Concomitant]
     Dosage: 250 MG, UNK
     Route: 048
  9. FAMOTIDINE [Concomitant]
     Dosage: 20 UNK, UNK
  10. ZOMIG-ZMT [Concomitant]
     Dosage: 2.5 MG, UNK
  11. FIORICET [Concomitant]
  12. EPIPEN                             /00003901/ [Concomitant]
  13. FLONASE [Concomitant]
     Dosage: 50 A?G, UNK
  14. SIMVASTATIN [Concomitant]
     Dosage: 20 MG, UNK
  15. PREMARIN [Concomitant]
     Dosage: 0.3 MG, UNK
  16. SOMA [Concomitant]
     Dosage: 350 MG, UNK
  17. DEXLANSOPRAZOLE [Concomitant]
     Route: 048
  18. PERCOCET [Concomitant]
     Dosage: 325 MG, UNK
  19. DIOVAN [Concomitant]
     Dosage: 80 MG, UNK
  20. CETIRIZINE HYDROCHLORIDE [Concomitant]
     Dosage: 10 MG, UNK
  21. SINGULAIR                          /01362602/ [Concomitant]
     Dosage: 10 MG, UNK

REACTIONS (16)
  - RASH MORBILLIFORM [None]
  - PSORIASIS [None]
  - EYE PRURITUS [None]
  - DRUG ERUPTION [None]
  - DRUG HYPERSENSITIVITY [None]
  - RASH ERYTHEMATOUS [None]
  - RHINORRHOEA [None]
  - PHOTODERMATOSIS [None]
  - MACULE [None]
  - ACUTE FEBRILE NEUTROPHILIC DERMATOSIS [None]
  - COUGH [None]
  - PAPULE [None]
  - URTICARIA [None]
  - EXFOLIATIVE RASH [None]
  - RASH PRURITIC [None]
  - LUPUS-LIKE SYNDROME [None]
